FAERS Safety Report 18041454 (Version 4)
Quarter: 2025Q2

REPORT INFORMATION
  Report Type: Spontaneous
  Country: PT (occurrence: PT)
  Receive Date: 20200719
  Receipt Date: 20250621
  Transmission Date: 20250717
  Serious: Yes (Other)
  Sender: AUROBINDO
  Company Number: PT-GILEAD-2020-0479994

PATIENT
  Age: 51 Year
  Sex: Male

DRUGS (3)
  1. EMTRICITABINE\TENOFOVIR [Suspect]
     Active Substance: EMTRICITABINE\TENOFOVIR
     Indication: HIV infection
     Route: 065
     Dates: start: 2009
  2. RALTEGRAVIR [Suspect]
     Active Substance: RALTEGRAVIR
     Indication: HIV infection
     Route: 065
     Dates: start: 2009
  3. HALOPERIDOL [Concomitant]
     Active Substance: HALOPERIDOL
     Indication: Product used for unknown indication
     Route: 065

REACTIONS (9)
  - CSF HIV escape syndrome [Recovering/Resolving]
  - Abnormal behaviour [Recovering/Resolving]
  - Cerebellar syndrome [Recovering/Resolving]
  - Amnestic disorder [Recovering/Resolving]
  - Chorea [Recovering/Resolving]
  - Drug resistance [Recovering/Resolving]
  - Therapy non-responder [Recovering/Resolving]
  - Treatment noncompliance [Recovering/Resolving]
  - Drug ineffective [Unknown]

NARRATIVE: CASE EVENT DATE: 20190101
